FAERS Safety Report 5692421-4 (Version None)
Quarter: 2008Q2

REPORT INFORMATION
  Report Type: 
  Country: None (occurrence: None)
  Receive Date: 20080402
  Receipt Date: 20070622
  Transmission Date: 20081010
  Serious: No
  Sender: FDA-Public Use
  Company Number: US-BAYER-US-2007-023436

PATIENT

DRUGS (1)
  1. LEUKINE [Suspect]
     Dates: start: 20070101

REACTIONS (1)
  - CHEST PAIN [None]
